FAERS Safety Report 7130631-X (Version None)
Quarter: 2010Q4

REPORT INFORMATION
  Report Type: 
  Country: None (occurrence: None)
  Receive Date: 20101101
  Receipt Date: 20100920
  Transmission Date: 20110411
  Serious: No
  Sender: FDA-Public Use
  Company Number: 2010-12529

PATIENT
  Age: 87 Year
  Sex: Male
  Weight: 90.7 kg

DRUGS (17)
  1. GELNIQUE [Suspect]
     Indication: URINARY INCONTINENCE
     Dosage: 100 MG, DAILY, TOPICAL
     Route: 061
     Dates: start: 20100914
  2. RAPAFLO [Suspect]
     Indication: URINARY INCONTINENCE
     Dosage: 4 MG, DAILY, ORAL, 8 MG, DAILY, ORAL, 8 MG, DAILY, ORAL
     Route: 048
     Dates: start: 20100813, end: 20100903
  3. RAPAFLO [Suspect]
     Indication: URINARY INCONTINENCE
     Dosage: 4 MG, DAILY, ORAL, 8 MG, DAILY, ORAL, 8 MG, DAILY, ORAL
     Route: 048
     Dates: start: 20100914, end: 20100922
  4. RAPAFLO [Suspect]
     Indication: URINARY INCONTINENCE
     Dosage: 4 MG, DAILY, ORAL, 8 MG, DAILY, ORAL, 8 MG, DAILY, ORAL
     Route: 048
     Dates: start: 20100923
  5. VESICARE [Suspect]
     Indication: URINARY INCONTINENCE
     Dosage: 5 MG, DAILY, ORAL, 10 MG, DAILY, ORAL
     Route: 048
     Dates: start: 20100813, end: 20100822
  6. VESICARE [Suspect]
     Indication: URINARY INCONTINENCE
     Dosage: 5 MG, DAILY, ORAL, 10 MG, DAILY, ORAL
     Route: 048
     Dates: start: 20100823, end: 20100903
  7. DETROL LA [Concomitant]
  8. ASPIRIN [Concomitant]
  9. DILTIAZEM CD (DILTIAZEM HYDROCHLORIDE) [Concomitant]
  10. METHADONE HCL [Concomitant]
  11. NEXIUM [Concomitant]
  12. NIASPAN [Concomitant]
  13. SYNTHROID [Concomitant]
  14. TEMAZEPAM [Concomitant]
  15. VYTORIN [Concomitant]
  16. MIRALAX [Concomitant]
  17. ACETAMINOPHEN [Concomitant]

REACTIONS (3)
  - COGNITIVE DISORDER [None]
  - CONFUSIONAL STATE [None]
  - DISORIENTATION [None]
